FAERS Safety Report 5799599-2 (Version None)
Quarter: 2008Q3

REPORT INFORMATION
  Report Type: 
  Country: None (occurrence: None)
  Receive Date: 20080703
  Receipt Date: 20080620
  Transmission Date: 20090109
  Serious: Yes (Other)
  Sender: FDA-Public Use
  Company Number: PHHY2008JP10613

PATIENT
  Age: 9 Year
  Sex: Female

DRUGS (4)
  1. CYCLOSPORINE [Suspect]
     Indication: NEPHROTIC SYNDROME
  2. PREDNISOLONE [Suspect]
     Indication: NEPHROTIC SYNDROME
     Route: 048
  3. MIZORIBINE [Concomitant]
     Route: 048
  4. CYCLOPHOSPHAMIDE [Concomitant]
     Dosage: UNK
     Route: 042
     Dates: start: 20070101

REACTIONS (11)
  - ANTITHROMBIN III DECREASED [None]
  - COMPRESSION FRACTURE [None]
  - DISEASE RECURRENCE [None]
  - FAILURE TO THRIVE [None]
  - GROWTH RETARDATION [None]
  - HAEMOCONCENTRATION [None]
  - HYPOALBUMINAEMIA [None]
  - NEPHROPATHY [None]
  - NEPHROTIC SYNDROME [None]
  - OSTEOPOROSIS [None]
  - THROMBOTIC CEREBRAL INFARCTION [None]
